FAERS Safety Report 7450204-9 (Version None)
Quarter: 2011Q2

REPORT INFORMATION
  Report Type: 
  Country: None (occurrence: None)
  Receive Date: 20110502
  Receipt Date: 20110426
  Transmission Date: 20111010
  Serious: Yes (Death, Other)
  Sender: FDA-Public Use
  Company Number: US-PFIZER INC-HQWYE056601JUN05

PATIENT
  Sex: Male

DRUGS (14)
  1. EFFEXOR [Suspect]
     Indication: DEPRESSED MOOD
     Dosage: UNK
  2. CAPTOPRIL [Concomitant]
     Dosage: 12.5 MG, 2X/DAY, BEFORE MEALS
     Route: 048
     Dates: start: 20020508
  3. GLYCERYL TRINITRATE [Concomitant]
     Dosage: UNK
  4. HYOSCYAMINE [Concomitant]
     Dosage: UNK
  5. LANSOPRAZOLE [Concomitant]
     Dosage: 30 MG, 1X/DAY
     Dates: start: 20020507
  6. POTASSIUM [Concomitant]
     Dosage: 25 MEQ, 1X/DAY
     Dates: start: 20020507
  7. THEOPHYLLINE [Concomitant]
     Dosage: UNK
  8. FUROSEMIDE [Concomitant]
     Dosage: 40 MG, 1X/DAY
     Route: 048
     Dates: start: 20020507
  9. SPIRONOLACTONE [Concomitant]
     Dosage: 25 MG, 1X/DAY
     Dates: start: 20020507
  10. DIGOXIN [Concomitant]
     Dosage: 0.125 MG, 1X/DAY
     Route: 048
     Dates: start: 20020507
  11. ENTEX CAP [Concomitant]
     Dosage: UNK
  12. SIMVASTATIN [Concomitant]
     Dosage: 20 MG, AT BED TIME
     Route: 048
     Dates: start: 20020507
  13. AMIODARONE HYDROCHLORIDE [Concomitant]
     Dosage: 200 MG, 1X/DAY
     Route: 048
     Dates: start: 20020507
  14. CAPTOPRIL [Concomitant]
     Dosage: 25 MG, UNK

REACTIONS (1)
  - COMPLETED SUICIDE [None]
